FAERS Safety Report 18063308 (Version 5)
Quarter: 2020Q3

REPORT INFORMATION
  Report Type: Report from Study
  Country: CA (occurrence: CA)
  Receive Date: 20200723
  Receipt Date: 20200904
  Transmission Date: 20201103
  Serious: Yes (Other)
  Sender: FDA-Public Use
  Company Number: CA-TAKEDA-2020TUS031753

PATIENT
  Age: 68 Year
  Sex: Female
  Weight: 42 kg

DRUGS (3)
  1. VEDOLIZUMAB [Suspect]
     Active Substance: VEDOLIZUMAB
     Indication: CROHN^S DISEASE
     Dosage: 300 MILLIGRAM
     Route: 042
     Dates: start: 20190913
  2. VEDOLIZUMAB [Suspect]
     Active Substance: VEDOLIZUMAB
     Indication: COLITIS
  3. CORTIMENT                          /00028601/ [Concomitant]
     Active Substance: HYDROCORTISONE
     Dosage: UNK

REACTIONS (2)
  - Thyroid cancer [Recovered/Resolved with Sequelae]
  - Paralysis [Recovered/Resolved with Sequelae]
